FAERS Safety Report 22201187 (Version 1)
Quarter: 2023Q2

REPORT INFORMATION
  Report Type: Report from Study
  Country: US (occurrence: None)
  Receive Date: 20230412
  Receipt Date: 20230412
  Transmission Date: 20230722
  Serious: Yes (Hospitalization)
  Sender: FDA-Public Use
  Company Number: US-ROCHE-3326352

PATIENT

DRUGS (2)
  1. ATEZOLIZUMAB [Suspect]
     Active Substance: ATEZOLIZUMAB
     Indication: Plasma cell myeloma
     Dosage: DATE OF MOST RECENT DOSE OF STUDY DRUG: 05/MAR/2023
     Route: 041
     Dates: start: 20220622
  2. TALAZOPARIB [Suspect]
     Active Substance: TALAZOPARIB
     Indication: Plasma cell myeloma
     Dosage: DATE OF MOST RECENT DOSE OF STUDY DRUG: 05/MAR/2023
     Route: 048
     Dates: start: 20220622

REACTIONS (1)
  - Confusional state [Recovered/Resolved]

NARRATIVE: CASE EVENT DATE: 20230309
